FAERS Safety Report 24860734 (Version 3)
Quarter: 2025Q2

REPORT INFORMATION
  Report Type: Spontaneous
  Country: JP (occurrence: JP)
  Receive Date: 20250120
  Receipt Date: 20250530
  Transmission Date: 20250716
  Serious: Yes (Hospitalization, Other)
  Sender: BRISTOL-MYERS SQUIBB COMPANY
  Company Number: JP-BRISTOL-MYERS SQUIBB COMPANY-2025-008019

PATIENT
  Age: 70 Year
  Sex: Male

DRUGS (1)
  1. SOTYKTU [Suspect]
     Active Substance: DEUCRAVACITINIB
     Indication: Psoriasis
     Route: 048
     Dates: start: 2024, end: 20250114

REACTIONS (3)
  - Cerebrovascular accident [Unknown]
  - KL-6 increased [Unknown]
  - Haemoptysis [Unknown]

NARRATIVE: CASE EVENT DATE: 20240101
